FAERS Safety Report 22327932 (Version 2)
Quarter: 2024Q2

REPORT INFORMATION
  Report Type: Spontaneous
  Country: US (occurrence: US)
  Receive Date: 20230516
  Receipt Date: 20240531
  Transmission Date: 20240716
  Serious: No
  Sender: FDA-Public Use
  Company Number: US-RADIUS HEALTH INC.-2023US001272

PATIENT
  Sex: Female

DRUGS (2)
  1. TYMLOS [Suspect]
     Active Substance: ABALOPARATIDE
     Indication: Tricuspid valve incompetence
     Dosage: 80 MICROGRAM, QD
     Route: 058
     Dates: start: 202211
  2. TYMLOS [Suspect]
     Active Substance: ABALOPARATIDE
     Indication: Angina pectoris

REACTIONS (6)
  - Myalgia [Recovering/Resolving]
  - Injection site pain [Unknown]
  - Bone pain [Recovering/Resolving]
  - Pain in extremity [Recovering/Resolving]
  - Arthralgia [Recovering/Resolving]
  - Product use in unapproved indication [Unknown]
